FAERS Safety Report 15108602 (Version 1)
Quarter: 2018Q3

REPORT INFORMATION
  Report Type: Spontaneous
  Country: IT (occurrence: IT)
  Receive Date: 20180705
  Receipt Date: 20180705
  Transmission Date: 20181010
  Serious: Yes (Hospitalization)
  Sender: FDA-Public Use
  Company Number: IT-TEVA-2018-IT-917683

PATIENT
  Age: 75 Year
  Sex: Male

DRUGS (4)
  1. CONGESCOR [Concomitant]
     Active Substance: BISOPROLOL
     Route: 065
  2. ELIQUIS [Concomitant]
     Active Substance: APIXABAN
     Route: 065
  3. METFORMIN [Suspect]
     Active Substance: METFORMIN HYDROCHLORIDE
     Indication: DIABETES MELLITUS
     Dosage: 1 DOSAGE FORMS DAILY;
     Route: 048
     Dates: start: 20170101, end: 20180110
  4. LASIX [Concomitant]
     Active Substance: FUROSEMIDE
     Route: 065

REACTIONS (2)
  - Metabolic acidosis [Unknown]
  - Hyperlactacidaemia [Unknown]

NARRATIVE: CASE EVENT DATE: 20180110
